FAERS Safety Report 5239297-7 (Version None)
Quarter: 2007Q1

REPORT INFORMATION
  Report Type: 
  Country: None (occurrence: None)
  Receive Date: 20070216
  Receipt Date: 20070207
  Transmission Date: 20070707
  Serious: Yes (Other)
  Sender: FDA-Public Use
  Company Number: 2006SE04576

PATIENT
  Age: 78 Year
  Sex: Male

DRUGS (1)
  1. MARCAINE [Suspect]

REACTIONS (1)
  - POLYNEUROPATHY [None]
